FAERS Safety Report 6907889-2 (Version None)
Quarter: 2010Q3

REPORT INFORMATION
  Report Type: 
  Country: None (occurrence: None)
  Receive Date: 20100805
  Receipt Date: 20100721
  Transmission Date: 20110219
  Serious: Yes (Hospitalization, Other)
  Sender: FDA-Public Use
  Company Number: PHEH2006US10890

PATIENT
  Sex: Female

DRUGS (12)
  1. ZOMETA [Suspect]
  2. AREDIA [Suspect]
     Dosage: UNK
  3. IMODIUM [Concomitant]
  4. PRILOSEC [Concomitant]
  5. SPIRIVA [Concomitant]
  6. TEGELINE [Concomitant]
  7. PILOCARPINE HYDROCHLORIDE [Concomitant]
  8. BENZONATATE [Concomitant]
  9. ACYCLOVIR [Concomitant]
  10. DECADRON [Concomitant]
  11. THALIDOMIDE [Concomitant]
  12. REVLIMID [Concomitant]

REACTIONS (71)
  - ABDOMINAL PAIN [None]
  - ADRENAL INSUFFICIENCY [None]
  - ADRENAL SUPPRESSION [None]
  - ANAEMIA OF MALIGNANT DISEASE [None]
  - ANXIETY [None]
  - ARTHRALGIA [None]
  - ARTHRITIS BACTERIAL [None]
  - ARTHROPATHY [None]
  - ASTHENIA [None]
  - ATELECTASIS [None]
  - BACK PAIN [None]
  - BONE LESION [None]
  - BONE MARROW TRANSPLANT [None]
  - BRONCHIECTASIS [None]
  - BRONCHITIS [None]
  - BULLOUS LUNG DISEASE [None]
  - CHEST PAIN [None]
  - CHEST TUBE INSERTION [None]
  - CHILLS [None]
  - CHRONIC OBSTRUCTIVE PULMONARY DISEASE [None]
  - DECREASED APPETITE [None]
  - DEEP VEIN THROMBOSIS [None]
  - DEHYDRATION [None]
  - DIARRHOEA [None]
  - DYSPNOEA [None]
  - EATING DISORDER [None]
  - EMPHYSEMA [None]
  - FALL [None]
  - GASTROENTERITIS [None]
  - GASTROOESOPHAGEAL REFLUX DISEASE [None]
  - HIATUS HERNIA [None]
  - HYPERCALCAEMIA [None]
  - HYPERGLYCAEMIA [None]
  - HYPOKALAEMIA [None]
  - HYPONATRAEMIA [None]
  - INFECTIVE TENOSYNOVITIS [None]
  - INJURY [None]
  - INTERSTITIAL LUNG DISEASE [None]
  - INTERVERTEBRAL DISC DEGENERATION [None]
  - INTERVERTEBRAL DISC PROTRUSION [None]
  - JOINT SWELLING [None]
  - LIVER DISORDER [None]
  - LUNG NEOPLASM [None]
  - LYMPHADENOPATHY MEDIASTINAL [None]
  - MULTIPLE MYELOMA [None]
  - MUSCLE SPASMS [None]
  - MUSCULOSKELETAL DISCOMFORT [None]
  - MYALGIA [None]
  - NERVE ROOT COMPRESSION [None]
  - OEDEMA PERIPHERAL [None]
  - ORAL CANDIDIASIS [None]
  - OSTEITIS [None]
  - OSTEOARTHRITIS [None]
  - OSTEONECROSIS OF JAW [None]
  - PAIN [None]
  - PELVIC FRACTURE [None]
  - PHLEBITIS [None]
  - PNEUMONIA [None]
  - PNEUMOTHORAX [None]
  - PULMONARY FIBROSIS [None]
  - PYREXIA [None]
  - RASH ERYTHEMATOUS [None]
  - RASH MORBILLIFORM [None]
  - RASH PRURITIC [None]
  - SARCOIDOSIS [None]
  - STREPTOCOCCAL SEPSIS [None]
  - TRANSAMINASES INCREASED [None]
  - UPPER RESPIRATORY TRACT INFECTION [None]
  - URINARY TRACT INFECTION [None]
  - VASCULAR CALCIFICATION [None]
  - WEIGHT DECREASED [None]
